FAERS Safety Report 5787304-5 (Version None)
Quarter: 2008Q2

REPORT INFORMATION
  Report Type: 
  Country: None (occurrence: None)
  Receive Date: 20080625
  Receipt Date: 20070904
  Transmission Date: 20081010
  Serious: No
  Sender: FDA-Public Use
  Company Number: US-ASTRAZENECA-2007UW20829

PATIENT
  Age: 63 Year
  Sex: Female
  Weight: 72.6 kg

DRUGS (10)
  1. PULMICORT FLEXHALER [Suspect]
     Indication: ASTHMA
     Route: 055
     Dates: start: 20070828
  2. PULMICORT FLEXHALER [Suspect]
     Route: 055
     Dates: start: 20070901
  3. SYNTHROID [Concomitant]
  4. CYTOMEL [Concomitant]
  5. UNIFYL [Concomitant]
  6. BRICANYL [Concomitant]
     Route: 055
  7. TERBUTALINE SULFATE [Concomitant]
  8. INTAL [Concomitant]
     Route: 055
  9. ZYRTEC [Concomitant]
  10. XOPENEX [Concomitant]

REACTIONS (3)
  - CHEST PAIN [None]
  - COUGH [None]
  - NASAL CONGESTION [None]
